FAERS Safety Report 9681244 (Version 1)
Quarter: 2013Q4

REPORT INFORMATION
  Report Type: Spontaneous
  Country: US (occurrence: None)
  Receive Date: 20131108
  Receipt Date: 20131108
  Transmission Date: 20140711
  Serious: Yes (Life-Threatening, Hospitalization)
  Sender: FDA-Public Use
  Company Number: None

PATIENT
  Age: 49 Year
  Sex: Female
  Weight: 58.06 kg

DRUGS (1)
  1. VENOFER [Suspect]

REACTIONS (4)
  - Vomiting [None]
  - Blood pressure decreased [None]
  - Joint stiffness [None]
  - Drug hypersensitivity [None]
